FAERS Safety Report 11910504 (Version 1)
Quarter: 2016Q1

REPORT INFORMATION
  Report Type: Spontaneous
  Country: US (occurrence: None)
  Receive Date: 20160111
  Receipt Date: 20160111
  Transmission Date: 20160526
  Serious: Yes (Hospitalization)
  Sender: FDA-Public Use
  Company Number: None

PATIENT
  Age: 79 Year
  Sex: Female
  Weight: 63.18 kg

DRUGS (1)
  1. RITUXIMAB (MOAB C2B8 ANTI CD20, CHIMERIC) [Suspect]
     Active Substance: RITUXIMAB
     Dates: end: 20151130

REACTIONS (8)
  - Syncope [None]
  - Chills [None]
  - Blood pressure decreased [None]
  - Asthenia [None]
  - Infusion related reaction [None]
  - Dysarthria [None]
  - Treatment noncompliance [None]
  - Dizziness [None]

NARRATIVE: CASE EVENT DATE: 20151230
